FAERS Safety Report 10187364 (Version 2)
Quarter: 2015Q4

REPORT INFORMATION
  Report Type: Report from Study
  Country: US (occurrence: US)
  Receive Date: 20140522
  Receipt Date: 20151016
  Transmission Date: 20160304
  Serious: Yes (Life-Threatening)
  Sender: FDA-Public Use
  Company Number: US-ROCHE-1400760

PATIENT
  Age: 29 Year
  Sex: Female
  Weight: 82 kg

DRUGS (9)
  1. DIPHENHYDRAMINE. [Concomitant]
     Active Substance: DIPHENHYDRAMINE
     Route: 065
  2. XOLAIR [Suspect]
     Active Substance: OMALIZUMAB
     Route: 058
  3. EPINEPHRINE. [Concomitant]
     Active Substance: EPINEPHRINE
  4. XOLAIR [Suspect]
     Active Substance: OMALIZUMAB
     Route: 058
  5. VALIUM [Suspect]
     Active Substance: DIAZEPAM
     Indication: SEIZURE
     Route: 065
  6. CELESTONE [Concomitant]
     Active Substance: BETAMETHASONE
     Route: 065
  7. XOLAIR [Suspect]
     Active Substance: OMALIZUMAB
     Indication: ASTHMA
     Route: 058
     Dates: start: 20111208, end: 20111229
  8. MARIJUANA [Concomitant]
     Active Substance: CANNABIS SATIVA SUBSP. INDICA TOP
  9. DEPO-MEDROL [Concomitant]
     Active Substance: METHYLPREDNISOLONE ACETATE
     Route: 065

REACTIONS (20)
  - Anaphylactic reaction [Unknown]
  - Pain [Unknown]
  - Pharyngeal erythema [Unknown]
  - Asthma [Unknown]
  - Dysphonia [Unknown]
  - Urticaria [Unknown]
  - Rash [Unknown]
  - Local swelling [Unknown]
  - Seizure [Unknown]
  - Skin swelling [Unknown]
  - Loss of consciousness [Unknown]
  - Fatigue [Unknown]
  - Peripheral swelling [Unknown]
  - Headache [Unknown]
  - Conjunctival hyperaemia [Unknown]
  - Pharyngeal hypertrophy [Unknown]
  - Tremor [Unknown]
  - Delirium tremens [Unknown]
  - Chills [Unknown]
  - Hyperhidrosis [Unknown]

NARRATIVE: CASE EVENT DATE: 201210
